FAERS Safety Report 11109483 (Version 1)
Quarter: 2015Q2

REPORT INFORMATION
  Report Type: Spontaneous
  Country: RU (occurrence: RU)
  Receive Date: 20150513
  Receipt Date: 20150513
  Transmission Date: 20150821
  Serious: Yes (Death)
  Sender: FDA-Public Use
  Company Number: RU-TEVA-561157ISR

PATIENT
  Age: 15 Year
  Sex: Female

DRUGS (2)
  1. SALBUTAMOL-TEVA [Suspect]
     Active Substance: ALBUTEROL
     Route: 065
  2. VENTOLIN [Suspect]
     Active Substance: ALBUTEROL SULFATE
     Route: 055

REACTIONS (3)
  - Drug ineffective [Fatal]
  - Death [Fatal]
  - Asthma [Fatal]
